FAERS Safety Report 5775491-4 (Version None)
Quarter: 2008Q2

REPORT INFORMATION
  Report Type: 
  Country: None (occurrence: None)
  Receive Date: 20080601
  Receipt Date: 20080121
  Transmission Date: 20081010
  Serious: No
  Sender: FDA-Public Use
  Company Number: US200711001354

PATIENT
  Age: 49 Year
  Sex: Female
  Weight: 89.8 kg

DRUGS (18)
  1. BYETTA [Suspect]
     Dosage: 5 UG, 2/D, SUBCUTANEOUS ; 10 UG, 2/D, SUBCUTANEOUS
     Route: 058
     Dates: start: 20061122, end: 20071029
  2. BYETTA [Suspect]
     Dosage: 5 UG, 2/D, SUBCUTANEOUS ; 10 UG, 2/D, SUBCUTANEOUS
     Route: 058
     Dates: start: 20061025
  3. SYNTHROID [Concomitant]
  4. MAGNESIUM (MAGNESIUM) [Concomitant]
  5. FISH OIL (FISH OIL) [Concomitant]
  6. MULTIVITAMINS (ASCORBIC ACID, ERGOCALCIFEROL, FOLIC ACID, NICOTINAMIDE [Concomitant]
  7. CLARITIN [Concomitant]
  8. ADVAIR DISKUS (FLUTICASONE PROPIONATE, SALMETEROL XINAFOATE) [Concomitant]
  9. METFORMIN HCL [Concomitant]
  10. ACTOS /USA/ (PIOGLITAZONE HYDROCHLORIDE) [Concomitant]
  11. ASPIRIN [Concomitant]
  12. CALCIUM /VITAMIN D NOS (CALCIUM, VITAMIN D NOS) [Concomitant]
  13. AMITRIPTLINE HYDROCHLORIDE TAB [Concomitant]
  14. ACCUPRIL [Concomitant]
  15. GLUCOPHAGE [Concomitant]
  16. LIPITOR [Concomitant]
  17. OMNICEF [Concomitant]
  18. INFLUENZA VACCINE (INFLUENZA VACCINE) [Concomitant]

REACTIONS (2)
  - BLOOD GLUCOSE INCREASED [None]
  - LYMPHADENOPATHY [None]
